FAERS Safety Report 8220607-3 (Version None)
Quarter: 2012Q1

REPORT INFORMATION
  Report Type: 
  Country: None (occurrence: None)
  Receive Date: 20120320
  Receipt Date: 20120307
  Transmission Date: 20120608
  Serious: Yes (Death)
  Sender: FDA-Public Use
  Company Number: GR-ASTELLAS-2012US002844

PATIENT
  Age: 51 Year
  Sex: Male

DRUGS (1)
  1. AMBISOME [Suspect]
     Indication: BRONCHOPULMONARY ASPERGILLOSIS
     Dosage: 5 MG/KG, UID/QD
     Route: 042

REACTIONS (1)
  - DRUG INEFFECTIVE [None]
